APPROVED DRUG PRODUCT: IBUPROFEN
Active Ingredient: IBUPROFEN
Strength: 200MG
Dosage Form/Route: TABLET;ORAL
Application: A070493 | Product #001
Applicant: SUN PHARMACEUTICAL INDUSTRIES INC
Approved: Dec 24, 1985 | RLD: No | RS: No | Type: DISCN